FAERS Safety Report 18334327 (Version 1)
Quarter: 2020Q4

REPORT INFORMATION
  Report Type: Spontaneous
  Country: JP (occurrence: JP)
  Receive Date: 20201001
  Receipt Date: 20201001
  Transmission Date: 20210113
  Serious: Yes (Other)
  Sender: FDA-Public Use
  Company Number: JP-GLAXOSMITHKLINE-JP2020JPN189863

PATIENT
  Age: 34 Year
  Sex: Female

DRUGS (1)
  1. MEPOLIZUMAB [Suspect]
     Active Substance: MEPOLIZUMAB
     Indication: ASTHMA
     Dosage: UNK
     Route: 058

REACTIONS (8)
  - Chronic eosinophilic rhinosinusitis [Unknown]
  - Eating disorder [Unknown]
  - Nasal congestion [Unknown]
  - Asthma [Unknown]
  - Eosinophilic otitis media [Unknown]
  - Dermatitis atopic [Unknown]
  - Eosinophilic oesophagitis [Unknown]
  - Drug ineffective [Unknown]
